FAERS Safety Report 7283207-8 (Version None)
Quarter: 2011Q1

REPORT INFORMATION
  Report Type: 
  Country: None (occurrence: None)
  Receive Date: 20110209
  Receipt Date: 20110127
  Transmission Date: 20110831
  Serious: Yes (Hospitalization)
  Sender: FDA-Public Use
  Company Number: PHHY2010DE57080

PATIENT
  Sex: Female

DRUGS (12)
  1. AMPHOTERICIN B [Concomitant]
  2. CAPTOPRIL [Concomitant]
     Dosage: BID
  3. METOCLOPRAMIDE [Concomitant]
     Dosage: UNK
  4. AMLODIPINE [Concomitant]
     Dosage: BID
  5. NOVAMINSULFON [Concomitant]
  6. EVEROLIMUS [Suspect]
     Indication: RENAL CELL CARCINOMA
     Dosage: 5 MG, DAILY
     Dates: start: 20091008, end: 20100201
  7. TAMOXIFEN CITRATE [Concomitant]
     Dosage: OD
  8. VERAPAMIL [Concomitant]
     Dosage: BID
  9. LEVOTHYROXINE SODIUM [Concomitant]
     Dosage: BID
  10. ESOMEPRAZOLE [Concomitant]
     Dosage: UNK, BID
  11. OXYCODONE HCL [Concomitant]
     Dosage: BID
  12. ANTACIDS [Concomitant]

REACTIONS (16)
  - GENERAL PHYSICAL HEALTH DETERIORATION [None]
  - GASTROOESOPHAGEAL REFLUX DISEASE [None]
  - HIATUS HERNIA [None]
  - BUNDLE BRANCH BLOCK [None]
  - DYSPHAGIA [None]
  - OESOPHAGITIS ULCERATIVE [None]
  - DYSPEPSIA [None]
  - ORAL CANDIDIASIS [None]
  - SPINAL OSTEOARTHRITIS [None]
  - BARRETT'S OESOPHAGUS [None]
  - ASTHENIA [None]
  - THYROID CYST [None]
  - OSTEOCHONDROSIS [None]
  - ODYNOPHAGIA [None]
  - STOMATITIS [None]
  - NAUSEA [None]
